FAERS Safety Report 5718305-0 (Version None)
Quarter: 2008Q2

REPORT INFORMATION
  Report Type: 
  Country: None (occurrence: None)
  Receive Date: 20080425
  Receipt Date: 20080415
  Transmission Date: 20081010
  Serious: Yes (Death)
  Sender: FDA-Public Use
  Company Number: US-ABBOTT-07P-163-0371986-00

PATIENT
  Age: 26 Year
  Sex: Female
  Weight: 68.2 kg

DRUGS (13)
  1. VICODIN [Suspect]
     Indication: DRUG ABUSE
     Dosage: 40 TO 60 PILLS PER DAY
     Route: 065
     Dates: start: 19980101
  2. HYDROMORPHONE HCL [Suspect]
     Indication: DRUG USE FOR UNKNOWN INDICATION
     Dosage: NOT REPORTED
     Dates: end: 20060915
  3. KADIAN [Suspect]
     Indication: DRUG USE FOR UNKNOWN INDICATION
     Route: 065
     Dates: end: 20060915
  4. PARACETAMOL [Suspect]
     Indication: DRUG USE FOR UNKNOWN INDICATION
     Dosage: NOT REPORTED
     Route: 065
     Dates: end: 20060915
  5. TRAZODONE HCL [Suspect]
     Indication: DRUG USE FOR UNKNOWN INDICATION
     Dosage: NOT REPORTED
     Route: 065
     Dates: end: 20060915
  6. FLUOXETINE [Suspect]
     Indication: DRUG USE FOR UNKNOWN INDICATION
     Dosage: NOT REPORTED
     Route: 065
     Dates: end: 20060915
  7. DIPHENHYDRAMINE HCL [Suspect]
     Indication: DRUG USE FOR UNKNOWN INDICATION
     Dosage: NOT REPORTED
     Route: 065
     Dates: end: 20060915
  8. METHAMPHETAMINE HYDROCHLORIDE [Concomitant]
     Indication: DRUG ABUSE
     Dosage: NOT REPORTED
     Route: 065
     Dates: end: 20060915
  9. HYDROXYZINE [Concomitant]
     Indication: DRUG USE FOR UNKNOWN INDICATION
     Dosage: NOT REPORTED
     Dates: end: 20060915
  10. NICOTINE [Concomitant]
     Indication: DRUG USE FOR UNKNOWN INDICATION
     Dosage: NOT REPORTED
     Dates: end: 20060915
  11. CAFFEINE CITRATE [Concomitant]
     Indication: DRUG USE FOR UNKNOWN INDICATION
     Dosage: NOT REPORTED
     Dates: end: 20060915
  12. ANTIHYPERTENSIVES [Concomitant]
     Indication: HYPERTENSION
     Dosage: NOT REPORTED
     Dates: end: 20060901
  13. UNKNOWN MEDICATION [Concomitant]
     Indication: ANXIETY
     Dosage: NOT REPORTED

REACTIONS (7)
  - ACCIDENTAL DEATH [None]
  - ACCIDENTAL OVERDOSE [None]
  - DRUG ABUSE [None]
  - DRUG DIVERSION [None]
  - DRUG TOXICITY [None]
  - IMPRISONMENT [None]
  - PULMONARY OEDEMA [None]
